FAERS Safety Report 23941729 (Version 1)
Quarter: 2024Q2

REPORT INFORMATION
  Report Type: Spontaneous
  Country: CN (occurrence: CN)
  Receive Date: 20240605
  Receipt Date: 20240605
  Transmission Date: 20240716
  Serious: Yes (Other)
  Sender: FDA-Public Use
  Company Number: CN-BAYER-2024A081555

PATIENT
  Age: 52 Year
  Sex: Female
  Weight: 65 kg

DRUGS (1)
  1. ULTRAVIST [Suspect]
     Active Substance: IOPROMIDE
     Indication: Computerised tomogram
     Dosage: 80 ML, ONCE, HIGH PRESSURE INTRAVENOUS
     Route: 042
     Dates: start: 20240529, end: 20240529

REACTIONS (4)
  - Rash pruritic [Recovering/Resolving]
  - Dysphonia [Recovering/Resolving]
  - Cyanosis [Recovering/Resolving]
  - Depressed mood [Recovering/Resolving]

NARRATIVE: CASE EVENT DATE: 20240529
